FAERS Safety Report 8013829-8 (Version None)
Quarter: 2011Q4

REPORT INFORMATION
  Report Type: 
  Country: None (occurrence: None)
  Receive Date: 20111229
  Receipt Date: 20111221
  Transmission Date: 20120403
  Serious: Yes (Other)
  Sender: FDA-Public Use
  Company Number: PHFR2011GB007071

PATIENT
  Sex: Male

DRUGS (2)
  1. PREGABALIN [Concomitant]
     Dosage: 600 MG, QD
  2. TEGRETOL [Suspect]
     Indication: EPILEPSY
     Dosage: 1000 MG, QD

REACTIONS (3)
  - PERIPHERAL NERVE LESION [None]
  - PAIN IN EXTREMITY [None]
  - BLOOD SODIUM DECREASED [None]
